FAERS Safety Report 8383708-5 (Version None)
Quarter: 2012Q1

REPORT INFORMATION
  Report Type: 
  Country: None (occurrence: None)
  Receive Date: 20120323
  Receipt Date: 20110316
  Transmission Date: 20120608
  Serious: Yes (Other)
  Sender: FDA-Public Use
  Company Number: 163-21880-11030548

PATIENT
  Age: 54 Year
  Sex: Female

DRUGS (3)
  1. REVLIMID [Suspect]
     Indication: MULTIPLE MYELOMA
     Dosage: 15 MG, DAILY 21/28, PO
     Route: 048
     Dates: start: 20110105
  2. DECADRON [Concomitant]
  3. VELCADE [Concomitant]

REACTIONS (1)
  - DEEP VEIN THROMBOSIS [None]
